FAERS Safety Report 5272488-8 (Version None)
Quarter: 2007Q1

REPORT INFORMATION
  Report Type: 
  Country: None (occurrence: None)
  Receive Date: 20070322
  Receipt Date: 20060208
  Transmission Date: 20070707
  Serious: No
  Sender: FDA-Public Use
  Company Number: US-BRISTOL-MYERS SQUIBB COMPANY-13276332

PATIENT
  Sex: Male
  Weight: 91 kg

DRUGS (4)
  1. KENALOG [Suspect]
  2. BENICAR [Concomitant]
  3. DORZOLAMIDE HCL TIMOLOL MALEATE [Concomitant]
  4. TERAZOSIN HCL [Concomitant]

REACTIONS (6)
  - COUGH [None]
  - DYSPHONIA [None]
  - HAEMOGLOBIN DECREASED [None]
  - LOCALISED INFECTION [None]
  - OEDEMA PERIPHERAL [None]
  - SWELLING FACE [None]
